FAERS Safety Report 9662538 (Version 2)
Quarter: 2013Q4

REPORT INFORMATION
  Report Type: Spontaneous
  Country: US (occurrence: US)
  Receive Date: 20131031
  Receipt Date: 20131031
  Transmission Date: 20140711
  Serious: No
  Sender: FDA-Public Use
  Company Number: US-PURDUE-USA-2010-0049145

PATIENT
  Age: 35 Year
  Sex: Female

DRUGS (4)
  1. OXYCONTIN (NDA 22-272) [Suspect]
     Indication: FIBROMYALGIA
     Dosage: 40 MG, Q8H
     Route: 048
     Dates: end: 20100930
  2. OXYCONTIN (NDA 22-272) [Suspect]
     Indication: PAIN
  3. OXYCODONE HCL IR CAPSULES [Concomitant]
     Indication: BREAKTHROUGH PAIN
  4. BENADRYL                           /00000402/ [Concomitant]
     Indication: PRURITUS
     Dosage: 40 MG, Q8H

REACTIONS (7)
  - Wheezing [Unknown]
  - Pain [Unknown]
  - Hot flush [Unknown]
  - Drug effect decreased [Unknown]
  - Pruritus [Recovered/Resolved]
  - Abdominal pain upper [Recovered/Resolved]
  - Diarrhoea [Unknown]
